FAERS Safety Report 9848386 (Version 1)
Quarter: 2013Q4

REPORT INFORMATION
  Report Type: Spontaneous
  Country: US (occurrence: None)
  Receive Date: 20131224
  Receipt Date: 20131224
  Transmission Date: 20140711
  Serious: Yes (Other)
  Sender: FDA-Public Use
  Company Number: PHEH2013US018496

PATIENT
  Sex: Female

DRUGS (3)
  1. MYFORTIC (MYCOPHENOLIC ACID) UNKNOWN [Suspect]
  2. PROGRAF (TACROLIMUS) [Suspect]
  3. PREDNISONE (PREDNISONE) [Suspect]

REACTIONS (2)
  - Folliculitis [None]
  - Scar [None]
